FAERS Safety Report 5696702-X (Version None)
Quarter: 2008Q2

REPORT INFORMATION
  Report Type: 
  Country: None (occurrence: None)
  Receive Date: 20080408
  Receipt Date: 20060921
  Transmission Date: 20081010
  Serious: No
  Sender: FDA-Public Use
  Company Number: US-BAYER-US-2006-028278

PATIENT
  Age: 20 Year
  Sex: Female

DRUGS (1)
  1. YASMIN [Suspect]
     Indication: ORAL CONTRACEPTION
     Route: 048

REACTIONS (7)
  - IRRITABILITY [None]
  - LOSS OF LIBIDO [None]
  - MENSTRUATION IRREGULAR [None]
  - MIGRAINE [None]
  - MOOD SWINGS [None]
  - PALPITATIONS [None]
  - WEIGHT INCREASED [None]
